FAERS Safety Report 15339365 (Version 2)
Quarter: 2018Q4

REPORT INFORMATION
  Report Type: Report from Study
  Country: None (occurrence: US)
  Receive Date: 20180831
  Receipt Date: 20181015
  Transmission Date: 20190204
  Serious: Yes (Other)
  Sender: FDA-Public Use
  Company Number: US-ABBVIE-18K-163-2470639-00

PATIENT
  Age: 60 Year
  Sex: Female
  Weight: 52.66 kg

DRUGS (1)
  1. HUMIRA [Suspect]
     Active Substance: ADALIMUMAB
     Indication: RHEUMATOID ARTHRITIS
     Route: 058
     Dates: start: 20180416, end: 201808

REACTIONS (7)
  - Pruritus [Unknown]
  - Erythema [Unknown]
  - Contrast media reaction [Unknown]
  - Eye swelling [Unknown]
  - Ear swelling [Unknown]
  - Swelling [Unknown]
  - Cardiac disorder [Recovered/Resolved]

NARRATIVE: CASE EVENT DATE: 2018
